FAERS Safety Report 4686270-3 (Version None)
Quarter: 2005Q2

REPORT INFORMATION
  Report Type: 
  Country: None (occurrence: None)
  Receive Date: 20050609
  Receipt Date: 20050602
  Transmission Date: 20051028
  Serious: Yes (Other)
  Sender: FDA-Public Use
  Company Number: CH-GLAXOSMITHKLINE-B0383737A

PATIENT
  Age: 56 Year
  Sex: Male

DRUGS (7)
  1. ZIAGEN [Suspect]
     Indication: HIV INFECTION
     Dosage: 1U TWICE PER DAY
     Route: 048
     Dates: start: 20050412
  2. 3TC [Suspect]
     Indication: HIV INFECTION
     Dosage: 150MG TWICE PER DAY
     Route: 048
     Dates: start: 20050412
  3. DEXAMETHASONE SODIUM PHOSPHATE [Suspect]
     Indication: DRUG USE FOR UNKNOWN INDICATION
     Dosage: 1MG FOUR TIMES PER DAY
     Route: 048
     Dates: start: 20050402
  4. LOPINAVIR + RITONAVIR [Suspect]
     Indication: DRUG USE FOR UNKNOWN INDICATION
     Dosage: 3U TWICE PER DAY
     Route: 048
     Dates: start: 20050412
  5. SULFADIAZINE [Suspect]
     Indication: DRUG USE FOR UNKNOWN INDICATION
     Dosage: 4U TWICE PER DAY
     Route: 048
     Dates: start: 20050402
  6. CALCIUM FOLINATE [Concomitant]
     Dosage: 75MG PER DAY
     Route: 048
     Dates: start: 20050402
  7. PYRIMETHAMINE [Concomitant]
     Dosage: 25MG FOUR TIMES PER DAY
     Route: 048
     Dates: start: 20050402

REACTIONS (5)
  - ALANINE AMINOTRANSFERASE INCREASED [None]
  - BLOOD ALKALINE PHOSPHATASE INCREASED [None]
  - LIPASE INCREASED [None]
  - PANCREATIC ENZYMES INCREASED [None]
  - PANCREATITIS ACUTE [None]
